FAERS Safety Report 6609963-7 (Version None)
Quarter: 2010Q1

REPORT INFORMATION
  Report Type: 
  Country: None (occurrence: None)
  Receive Date: 20100302
  Receipt Date: 20100215
  Transmission Date: 20100710
  Serious: Yes (Death)
  Sender: FDA-Public Use
  Company Number: US-JNJFOC-20100208694

PATIENT
  Age: 58 Year
  Sex: Female
  Weight: 89.81 kg

DRUGS (4)
  1. FENTANYL [Suspect]
     Indication: DRUG USE FOR UNKNOWN INDICATION
  2. PHENTERMINE [Suspect]
     Indication: DRUG USE FOR UNKNOWN INDICATION
  3. TOPIRAMATE [Suspect]
     Indication: DRUG USE FOR UNKNOWN INDICATION
  4. BUPROPION HCL [Suspect]
     Indication: DRUG USE FOR UNKNOWN INDICATION

REACTIONS (1)
  - DRUG TOXICITY [None]
